FAERS Safety Report 15594397 (Version 4)
Quarter: 2018Q4

REPORT INFORMATION
  Report Type: Spontaneous
  Country: US (occurrence: CA)
  Receive Date: 20181107
  Receipt Date: 20181205
  Transmission Date: 20190205
  Serious: Yes (Death, Hospitalization)
  Sender: FDA-Public Use
  Company Number: CA-CELGENEUS-CAN-20181010008

PATIENT
  Age: 70 Year
  Sex: Female

DRUGS (20)
  1. SITAGLIPTIN [Concomitant]
     Active Substance: SITAGLIPTIN
     Indication: DEPRESSION
     Route: 065
     Dates: start: 20171018, end: 20181022
  2. MORPHINE SULFATE. [Concomitant]
     Active Substance: MORPHINE SULFATE
     Route: 065
     Dates: start: 20180808, end: 20181024
  3. METHYLPREDNISOLONE. [Concomitant]
     Active Substance: METHYLPREDNISOLONE
     Indication: PROPHYLAXIS
     Route: 065
     Dates: start: 20180614
  4. ONDANSETRON HYDROCHLORIDE. [Concomitant]
     Active Substance: ONDANSETRON HYDROCHLORIDE
     Route: 065
     Dates: start: 20180614
  5. ABRAXANE [Suspect]
     Active Substance: PACLITAXEL
     Indication: PANCREATIC CARCINOMA METASTATIC
     Dosage: 110 MILLIGRAM
     Route: 041
     Dates: start: 20180614, end: 20181018
  6. LORAZEPAM. [Concomitant]
     Active Substance: LORAZEPAM
     Indication: NAUSEA
     Route: 065
     Dates: start: 20180614
  7. BENADRYL [Concomitant]
     Active Substance: DIPHENHYDRAMINE HYDROCHLORIDE
     Indication: PROPHYLAXIS
     Route: 065
     Dates: start: 20180614
  8. SALBUTAMOL [Concomitant]
     Active Substance: ALBUTEROL
     Indication: INJECTION SITE REACTION
     Route: 065
     Dates: start: 20180614
  9. GEMCITABINE [Suspect]
     Active Substance: GEMCITABINE\GEMCITABINE HYDROCHLORIDE
     Indication: PANCREATIC CARCINOMA METASTATIC
     Dosage: 882 MILLIGRAM
     Route: 041
     Dates: start: 20180614, end: 20181018
  10. GLICLAZIDE [Concomitant]
     Active Substance: GLICLAZIDE
     Indication: DIABETES MELLITUS
     Route: 065
     Dates: start: 20180302, end: 20181024
  11. MORPHINE SULFATE. [Concomitant]
     Active Substance: MORPHINE SULFATE
     Indication: BACK PAIN
     Route: 065
     Dates: start: 20180507, end: 20181025
  12. ROSUVASTATIN. [Concomitant]
     Active Substance: ROSUVASTATIN
     Indication: HYPERCHOLESTEROLAEMIA
     Route: 065
     Dates: start: 20180303, end: 20181025
  13. METOCLOPRAMIDE HYDROCHLORIDE. [Concomitant]
     Active Substance: METOCLOPRAMIDE HYDROCHLORIDE
     Route: 065
     Dates: start: 20180614
  14. RESTORALAX [Concomitant]
     Active Substance: POLYETHYLENE GLYCOL 3350
     Indication: CONSTIPATION
     Route: 065
     Dates: start: 20180703, end: 20181025
  15. MAGNESIUM [Concomitant]
     Active Substance: MAGNESIUM
     Indication: DYSKINESIA
     Route: 065
     Dates: start: 20181003, end: 20181025
  16. PANCREATIN [Concomitant]
     Active Substance: PANCRELIPASE
     Indication: PROPHYLAXIS
     Route: 065
     Dates: start: 20180809, end: 20181025
  17. GABAPENTIN. [Concomitant]
     Active Substance: GABAPENTIN
     Indication: BACK PAIN
     Route: 065
     Dates: start: 20160417, end: 20181025
  18. METOCLOPRAMIDE HYDROCHLORIDE. [Concomitant]
     Active Substance: METOCLOPRAMIDE HYDROCHLORIDE
     Indication: NAUSEA
     Route: 065
     Dates: start: 20180716, end: 20181025
  19. EPINEPHRINE. [Concomitant]
     Active Substance: EPINEPHRINE
     Indication: INJECTION SITE REACTION
     Route: 065
     Dates: start: 20180614
  20. ONDANSETRON HYDROCHLORIDE. [Concomitant]
     Active Substance: ONDANSETRON HYDROCHLORIDE
     Indication: NAUSEA
     Route: 065
     Dates: start: 20180726, end: 20181025

REACTIONS (1)
  - Sepsis [Fatal]

NARRATIVE: CASE EVENT DATE: 20181022
